FAERS Safety Report 17530780 (Version 1)
Quarter: 2020Q1

REPORT INFORMATION
  Report Type: Spontaneous
  Country: US (occurrence: US)
  Receive Date: 20200304
  Receipt Date: 20200304
  Transmission Date: 20200409
  Serious: Yes (Life-Threatening)
  Sender: FDA-Public Use
  Company Number: None

PATIENT
  Age: 89 Year
  Sex: Male
  Weight: 120 kg

DRUGS (1)
  1. IRON DEXTRAN (IRON DEXTRAN (EQV-DEXFERRUM) 50MG/ML INJ) [Suspect]
     Active Substance: IRON DEXTRAN
     Indication: CARDIAC FAILURE CONGESTIVE
     Route: 042
     Dates: start: 20200218, end: 20200218

REACTIONS (1)
  - Hypotension [None]

NARRATIVE: CASE EVENT DATE: 20200218
